FAERS Safety Report 7824962-5 (Version None)
Quarter: 2011Q4

REPORT INFORMATION
  Report Type: 
  Country: None (occurrence: None)
  Receive Date: 20111019
  Receipt Date: 20110527
  Transmission Date: 20120403
  Serious: No
  Sender: FDA-Public Use
  Company Number: US-BRISTOL-MYERS SQUIBB COMPANY-15609308

PATIENT
  Age: 80 Year
  Sex: Female
  Weight: 63 kg

DRUGS (4)
  1. PREMARIN [Concomitant]
  2. AVALIDE [Suspect]
     Dosage: 1 DF = 150/12.5MG FOR 6-7 YEARS,NEW PILLS FOR ABOUT 3-4 DAYS, AS CONMED: 150 MG EVERY EVENING
  3. AVAPRO [Concomitant]
     Dosage: EVENING
  4. CELEBREX [Concomitant]

REACTIONS (1)
  - COUGH [None]
